FAERS Safety Report 24328091 (Version 1)
Quarter: 2024Q3

REPORT INFORMATION
  Report Type: Spontaneous
  Country: DE (occurrence: DE)
  Receive Date: 20240917
  Receipt Date: 20240917
  Transmission Date: 20241016
  Serious: Yes (Hospitalization, Other)
  Sender: AMICUS THERAPEUTICS
  Company Number: DE-AMICUS THERAPEUTICS, INC.-AMI_3366

PATIENT
  Sex: Female

DRUGS (1)
  1. GALAFOLD [Suspect]
     Active Substance: MIGALASTAT HYDROCHLORIDE
     Indication: Product used for unknown indication
     Dosage: 123 MILLIGRAM, QOD (EVERY SECOND DAY)
     Route: 048
     Dates: start: 2020

REACTIONS (1)
  - Cerebrovascular accident [Unknown]

NARRATIVE: CASE EVENT DATE: 20240101
